FAERS Safety Report 4679740-5 (Version None)
Quarter: 2005Q2

REPORT INFORMATION
  Report Type: 
  Country: None (occurrence: None)
  Receive Date: 20050602
  Receipt Date: 20050523
  Transmission Date: 20051028
  Serious: Yes (Hospitalization)
  Sender: FDA-Public Use
  Company Number: JP-ROCHE-405730

PATIENT
  Age: 78 Year
  Sex: Female

DRUGS (1)
  1. ROCEPHIN [Suspect]
     Indication: RENAL ABSCESS
     Dosage: ROUTE REPORTED AS INTRAVENOUS (NOT OTHERWISE SPECIFIED).
     Route: 042
     Dates: start: 20050418, end: 20050515

REACTIONS (1)
  - PANCYTOPENIA [None]
